FAERS Safety Report 7157733-6 (Version None)
Quarter: 2010Q4

REPORT INFORMATION
  Report Type: 
  Country: None (occurrence: None)
  Receive Date: 20101214
  Receipt Date: 20100302
  Transmission Date: 20110411
  Serious: No
  Sender: FDA-Public Use
  Company Number: US-ASTRAZENECA-2010SE04475

PATIENT
  Age: 45 Year
  Sex: Male
  Weight: 136.1 kg

DRUGS (6)
  1. CRESTOR [Suspect]
     Route: 048
     Dates: start: 20090901
  2. PLAVIX [Concomitant]
  3. METOPROLOL [Concomitant]
  4. ASPIRIN [Concomitant]
  5. FOLIC ACID [Concomitant]
  6. LISINOPRIL [Concomitant]

REACTIONS (3)
  - ARTHRALGIA [None]
  - BONE PAIN [None]
  - MYALGIA [None]
